FAERS Safety Report 4821976-4 (Version None)
Quarter: 2005Q4

REPORT INFORMATION
  Report Type: 
  Country: None (occurrence: None)
  Receive Date: 20051103
  Receipt Date: 20051025
  Transmission Date: 20060501
  Serious: Yes (Other)
  Sender: FDA-Public Use
  Company Number: 2005147834

PATIENT
  Age: 31 Year
  Sex: Female
  Weight: 65 kg

DRUGS (4)
  1. LYRICA [Suspect]
     Indication: EPILEPSY
     Dosage: 150 MG (75 MG, 2 IN 1 D), ORAL
     Route: 048
     Dates: start: 20050818
  2. TEGRETOL [Concomitant]
  3. VALPROATE SODIUM [Concomitant]
  4. PROPRANOLOL [Concomitant]

REACTIONS (3)
  - CONVULSION [None]
  - HEADACHE [None]
  - PALPITATIONS [None]
